FAERS Safety Report 4785253-2 (Version None)
Quarter: 2005Q3

REPORT INFORMATION
  Report Type: 
  Country: None (occurrence: None)
  Receive Date: 20050929
  Receipt Date: 20050913
  Transmission Date: 20060218
  Serious: Yes (Hospitalization)
  Sender: FDA-Public Use
  Company Number: 215136

PATIENT
  Age: 58 Year
  Sex: Male

DRUGS (4)
  1. AVASTIN (BEVACIZUMAB) PWDR + SOLVENT, INFUSION SOLN, 100MG [Suspect]
     Indication: COLORECTAL CANCER METASTATIC
     Dosage: 315 MG, Q3W, INTRAVENOUS
     Route: 042
     Dates: start: 20050420
  2. MACROGOL (POLYETHYLENE GLYCOL) [Concomitant]
  3. XANAX [Concomitant]
  4. DAFALGAN (ACETAMINOPHEN) [Concomitant]

REACTIONS (2)
  - CONFUSIONAL STATE [None]
  - TRANSIENT ISCHAEMIC ATTACK [None]
